FAERS Safety Report 4751352-4 (Version None)
Quarter: 2005Q3

REPORT INFORMATION
  Report Type: 
  Country: None (occurrence: None)
  Receive Date: 20050822
  Receipt Date: 20050812
  Transmission Date: 20060218
  Serious: Yes (Hospitalization, Other)
  Sender: FDA-Public Use
  Company Number: KII-2005-0017989

PATIENT
  Age: 31 Year
  Sex: Male

DRUGS (4)
  1. OXYCODONE HCL [Suspect]
     Dosage: ORAL
     Route: 048
  2. DIPHENHYDRAMINE HCL [Suspect]
     Dosage: ORAL
     Route: 048
  3. NSAID'S [Suspect]
     Dosage: ORAL
     Route: 048
  4. ETHANOL(ETHANOL) [Suspect]
     Dosage: ORAL
     Route: 048

REACTIONS (12)
  - BLOOD CREATINE PHOSPHOKINASE INCREASED [None]
  - BLOOD POTASSIUM DECREASED [None]
  - BLOOD PRESSURE INCREASED [None]
  - DYSARTHRIA [None]
  - HEART RATE INCREASED [None]
  - LUNG INFILTRATION [None]
  - MYDRIASIS [None]
  - PNEUMONIA ASPIRATION [None]
  - PYREXIA [None]
  - TREMOR [None]
  - URINE OUTPUT DECREASED [None]
  - WHITE BLOOD CELL COUNT ABNORMAL [None]
